FAERS Safety Report 12634068 (Version 4)
Quarter: 2016Q3

REPORT INFORMATION
  Report Type: Spontaneous
  Country: US (occurrence: US)
  Receive Date: 20160809
  Receipt Date: 20160825
  Transmission Date: 20161109
  Serious: Yes (Hospitalization, Other)
  Sender: FDA-Public Use
  Company Number: US-GLAXOSMITHKLINE-US2016GSK114168

PATIENT
  Age: 71 Year
  Sex: Female

DRUGS (8)
  1. SYMBICORT [Suspect]
     Active Substance: BUDESONIDE\FORMOTEROL FUMARATE DIHYDRATE
     Indication: PRODUCT USED FOR UNKNOWN INDICATION
     Dosage: UNK
  2. ATORVASTATIN [Concomitant]
     Active Substance: ATORVASTATIN
  3. BREO ELLIPTA [Suspect]
     Active Substance: FLUTICASONE FUROATE\VILANTEROL TRIFENATATE
     Indication: CHRONIC OBSTRUCTIVE PULMONARY DISEASE
     Dosage: 1 PUFF(S), QD
     Route: 055
     Dates: start: 201603
  4. LISINOPRIL. [Concomitant]
     Active Substance: LISINOPRIL
  5. ASPIRIN. [Concomitant]
     Active Substance: ASPIRIN
  6. CARVEDILOL. [Concomitant]
     Active Substance: CARVEDILOL
  7. BRILINTA [Concomitant]
     Active Substance: TICAGRELOR
  8. CALCIUM [Concomitant]
     Active Substance: CALCIUM

REACTIONS (5)
  - Dysphonia [Recovering/Resolving]
  - Drug dose omission [Unknown]
  - Oral candidiasis [Recovered/Resolved]
  - Myocardial infarction [Recovering/Resolving]
  - Ill-defined disorder [Unknown]

NARRATIVE: CASE EVENT DATE: 201605
